FAERS Safety Report 11281619 (Version 1)
Quarter: 2015Q3

REPORT INFORMATION
  Report Type: Spontaneous
  Country: FR (occurrence: FR)
  Receive Date: 20150717
  Receipt Date: 20150717
  Transmission Date: 20151125
  Serious: Yes (Hospitalization)
  Sender: FDA-Public Use
  Company Number: FR-ABBVIE-15P-056-1427829-00

PATIENT
  Age: 62 Year
  Sex: Male

DRUGS (2)
  1. VALPROATE SALT NOT SPECIFIED [Suspect]
     Active Substance: VALPROATE SODIUM
     Indication: POST-TRAUMATIC EPILEPSY
     Route: 065
  2. PHENOBARBITAL. [Concomitant]
     Active Substance: PHENOBARBITAL
     Indication: POST-TRAUMATIC EPILEPSY
     Route: 065

REACTIONS (6)
  - Cognitive disorder [Recovering/Resolving]
  - Electroencephalogram abnormal [Recovering/Resolving]
  - Confusional state [Recovering/Resolving]
  - Status epilepticus [Recovering/Resolving]
  - Neurological decompensation [Recovering/Resolving]
  - Toxic encephalopathy [Recovering/Resolving]
